FAERS Safety Report 6753239-4 (Version None)
Quarter: 2010Q2

REPORT INFORMATION
  Report Type: 
  Country: None (occurrence: None)
  Receive Date: 20100603
  Receipt Date: 20100524
  Transmission Date: 20101027
  Serious: Yes (Other)
  Sender: FDA-Public Use
  Company Number: PHHY2010BR34288

PATIENT
  Age: 81 Year
  Sex: Female
  Weight: 51.8 kg

DRUGS (11)
  1. ACLASTA [Suspect]
     Indication: OSTEOPOROSIS
     Dosage: UNK
     Dates: start: 20090901
  2. CALCIUM D3 (NCH) [Suspect]
     Dosage: 1 TABLET A DAY
     Route: 048
  3. LOSARTAN POTASSIUM [Concomitant]
     Indication: HYPERTENSION
     Dosage: 1 TABLET A DAY
  4. ASPIRIN [Concomitant]
     Indication: ANTICOAGULANT THERAPY
     Dosage: 1 TABLET A DAY
  5. SINVASTANIN [Concomitant]
     Indication: BLOOD CHOLESTEROL
     Dosage: 1 TABLET AT DINNER
  6. ALENDRONATE SODIUM [Concomitant]
     Indication: OSTEOPOROSIS
     Dosage: 1 TABLET ONCE A WEEK
     Route: 048
  7. PANTOGAR [Concomitant]
     Indication: ALOPECIA
     Dosage: 1 TABLET A DAY
  8. OLCADIL [Concomitant]
     Indication: ANXIETY
     Dosage: 1 TABLET AT NIGHT
     Dates: start: 20091001
  9. VITREGAN MASTER [Concomitant]
     Indication: DECREASED APPETITE
     Dosage: 1 TABLET A DAY
     Dates: start: 20091201
  10. VITREGAN MASTER [Concomitant]
     Indication: WEIGHT DECREASED
  11. CARBON DIOXIDE THERAPY [Concomitant]
     Dosage: 1 APPLICATION ONCE A WEEK

REACTIONS (1)
  - ARRHYTHMIA [None]
